FAERS Safety Report 5567590-7 (Version None)
Quarter: 2007Q4

REPORT INFORMATION
  Report Type: 
  Country: None (occurrence: None)
  Receive Date: 20071219
  Receipt Date: 20071207
  Transmission Date: 20080405
  Serious: Yes (Other)
  Sender: FDA-Public Use
  Company Number: US-PFIZER INC-2007104212

PATIENT
  Age: 66 Year
  Sex: Male
  Weight: 84.09 kg

DRUGS (2)
  1. DILANTIN [Suspect]
     Indication: CONVULSION
  2. VITAMINS [Concomitant]

REACTIONS (4)
  - BODY HEIGHT DECREASED [None]
  - CONVULSION [None]
  - FALL [None]
  - SKIN LACERATION [None]
